FAERS Safety Report 20639452 (Version 1)
Quarter: 2022Q1

REPORT INFORMATION
  Report Type: Spontaneous
  Country: RU (occurrence: RU)
  Receive Date: 20220326
  Receipt Date: 20220326
  Transmission Date: 20220424
  Serious: Yes (Death, Hospitalization)
  Sender: FDA-Public Use
  Company Number: RU-CHIESI-2022CHF01428

PATIENT
  Sex: Male
  Weight: 1.95 kg

DRUGS (1)
  1. PORACTANT ALFA [Suspect]
     Active Substance: PORACTANT ALFA
     Indication: Neonatal respiratory distress syndrome
     Dosage: UNK
     Route: 007

REACTIONS (4)
  - Central nervous system injury [Fatal]
  - Necrotising enterocolitis neonatal [Recovered/Resolved with Sequelae]
  - Peritonitis [Recovered/Resolved with Sequelae]
  - Neonatal pneumonia [Unknown]
